FAERS Safety Report 10508063 (Version 1)
Quarter: 2014Q4

REPORT INFORMATION
  Report Type: Spontaneous
  Country: US (occurrence: US)
  Receive Date: 20141009
  Receipt Date: 20141009
  Transmission Date: 20150528
  Serious: No
  Sender: FDA-Public Use
  Company Number: US-ASTELLAS-2014US011020

PATIENT
  Sex: Female

DRUGS (1)
  1. MYRBETRIQ [Suspect]
     Active Substance: MIRABEGRON
     Indication: PRODUCT USED FOR UNKNOWN INDICATION
     Dosage: 25 MG, UNKNOWN FREQ (TWO DIFFERENT THERAPY TRIALS OF 3-4 DAYS EACH)
     Route: 065

REACTIONS (4)
  - Inappropriate schedule of drug administration [Unknown]
  - Pollakiuria [Unknown]
  - Micturition urgency [Unknown]
  - Drug ineffective [Unknown]
